FAERS Safety Report 5475543-2 (Version None)
Quarter: 2007Q4

REPORT INFORMATION
  Report Type: 
  Country: None (occurrence: None)
  Receive Date: 20071003
  Receipt Date: 20061023
  Transmission Date: 20080405
  Serious: No
  Sender: FDA-Public Use
  Company Number: US-KINGPHARMUSA00001-K200601336

PATIENT

DRUGS (2)
  1. SONATA [Suspect]
     Indication: INSOMNIA
     Dosage: 25 MG, QHS
     Route: 048
     Dates: start: 20061023, end: 20061023
  2. ZOLOFT [Concomitant]
     Indication: DEPRESSION
     Dosage: UNK, UNK

REACTIONS (2)
  - DRUG INEFFECTIVE [None]
  - OVERDOSE [None]
